FAERS Safety Report 20061912 (Version 1)
Quarter: 2021Q4

REPORT INFORMATION
  Report Type: Spontaneous
  Country: PL (occurrence: PL)
  Receive Date: 20211112
  Receipt Date: 20211112
  Transmission Date: 20220303
  Serious: Yes (Other)
  Sender: FDA-Public Use
  Company Number: PL-GILEAD-2021-0555839

PATIENT
  Age: 29 Year
  Sex: Male

DRUGS (4)
  1. TRUVADA [Suspect]
     Active Substance: EMTRICITABINE\TENOFOVIR DISOPROXIL FUMARATE
     Indication: HIV infection
     Dosage: UNK
     Route: 065
     Dates: start: 201402
  2. DARUNAVIR [Concomitant]
     Active Substance: DARUNAVIR
  3. RITONAVIR [Concomitant]
     Active Substance: RITONAVIR
  4. MESALAMINE [Concomitant]
     Active Substance: MESALAMINE

REACTIONS (2)
  - Gonococcal infection [Recovered/Resolved]
  - Chlamydial infection [Recovered/Resolved]

NARRATIVE: CASE EVENT DATE: 20180901
